FAERS Safety Report 9890119 (Version 1)
Quarter: 2014Q1

REPORT INFORMATION
  Report Type: Spontaneous
  Country: US (occurrence: US)
  Receive Date: 20140212
  Receipt Date: 20140212
  Transmission Date: 20141002
  Serious: No
  Sender: FDA-Public Use
  Company Number: US-BIOGENIDEC-2014BI011270

PATIENT
  Sex: Female

DRUGS (9)
  1. TECFIDERA [Suspect]
     Indication: MULTIPLE SCLEROSIS
     Route: 048
     Dates: start: 20130918
  2. AMPURA [Concomitant]
  3. ALPRAZOLAM [Concomitant]
  4. BUSPAR [Concomitant]
  5. CYMBALTA [Concomitant]
  6. IBUPROFEN [Concomitant]
  7. LISINOPRIL [Concomitant]
  8. TIZANIDINE [Concomitant]
  9. VITAMIN D [Concomitant]

REACTIONS (2)
  - Depression [Unknown]
  - Malaise [Unknown]
